FAERS Safety Report 13851786 (Version 1)
Quarter: 2017Q3

REPORT INFORMATION
  Report Type: Report from Study
  Country: BE (occurrence: BE)
  Receive Date: 20170809
  Receipt Date: 20170809
  Transmission Date: 20171127
  Serious: Yes (Death, Other)
  Sender: FDA-Public Use
  Company Number: BE-GILEAD-2017-0287036

PATIENT
  Age: 50 Year
  Sex: Male

DRUGS (1)
  1. SOFOSBUVIR W/VELPATASVIR [Suspect]
     Active Substance: SOFOSBUVIR\VELPATASVIR
     Indication: HEPATITIS C VIRUS TEST POSITIVE
     Dosage: UNK
     Route: 065
     Dates: start: 20170315

REACTIONS (1)
  - Death [Fatal]

NARRATIVE: CASE EVENT DATE: 20170521
